FAERS Safety Report 21754583 (Version 1)
Quarter: 2022Q4

REPORT INFORMATION
  Report Type: Spontaneous
  Country: US (occurrence: None)
  Receive Date: 20221220
  Receipt Date: 20221220
  Transmission Date: 20230113
  Serious: Yes (Death)
  Sender: FDA-Public Use
  Company Number: None

PATIENT
  Age: 80 Year
  Sex: Male
  Weight: 72 kg

DRUGS (10)
  1. REVLIMID [Suspect]
     Active Substance: LENALIDOMIDE
     Indication: Plasma cell myeloma
     Dosage: FREQUENCY : DAILY;?
     Route: 048
     Dates: start: 20220321
  2. albuterol sulfate concentrate [Concomitant]
  3. ATIVAN [Concomitant]
  4. ATORVASTATIN [Concomitant]
  5. BENAZEPRIL [Concomitant]
  6. DEXAMETHASONE [Concomitant]
  7. HYDROCHLOROTHIAZIDE [Concomitant]
  8. Men^s Daily Formula [Concomitant]
  9. NORVASC [Concomitant]
  10. SINGULAIR [Concomitant]

REACTIONS (1)
  - Death [None]
